FAERS Safety Report 24089246 (Version 1)
Quarter: 2024Q3

REPORT INFORMATION
  Report Type: Spontaneous
  Country: GB (occurrence: GB)
  Receive Date: 20240715
  Receipt Date: 20240715
  Transmission Date: 20241016
  Serious: Yes (Other)
  Sender: CIPLA
  Company Number: GB-MHRA-MED-202406301749069030-FDMTJ

PATIENT

DRUGS (1)
  1. CETIRIZINE [Suspect]
     Active Substance: CETIRIZINE HYDROCHLORIDE
     Indication: Adverse drug reaction
     Dosage: 10 MG DAILY INCREASED TO 4 TIMES PER DAY AT PEAK
     Route: 065
     Dates: start: 20170108

REACTIONS (2)
  - Medication error [Unknown]
  - Pruritus [Not Recovered/Not Resolved]

NARRATIVE: CASE EVENT DATE: 20240531
